FAERS Safety Report 8491101-X (Version None)
Quarter: 2012Q2

REPORT INFORMATION
  Report Type: 
  Country: None (occurrence: None)
  Receive Date: 20120402
  Receipt Date: 20120127
  Transmission Date: 20120825
  Serious: Yes (Hospitalization, Other)
  Sender: FDA-Public Use
  Company Number: 309280USA

PATIENT
  Age: 31 Year
  Sex: Female
  Weight: 90.7194 kg

DRUGS (2)
  1. NORMENSAL [Suspect]
     Indication: ORAL CONTRACEPTION
     Dosage: ETHINYL ESTRADIOL .035
     Dates: start: 20060101, end: 20100901
  2. NORTREL 1/35-21 [Suspect]
     Indication: ORAL CONTRACEPTION
     Dosage: ONE TABLET DAILY, ORAL
     Route: 048
     Dates: start: 20100901, end: 20110129

REACTIONS (10)
  - MONOPLEGIA [None]
  - MYALGIA [None]
  - BLINDNESS [None]
  - TENSION HEADACHE [None]
  - SUBARACHNOID HAEMORRHAGE [None]
  - SUPERIOR SAGITTAL SINUS THROMBOSIS [None]
  - MIGRAINE [None]
  - CONVULSION [None]
  - CONFUSIONAL STATE [None]
  - VISUAL ACUITY REDUCED [None]
